FAERS Safety Report 8367075-9 (Version None)
Quarter: 2012Q1

REPORT INFORMATION
  Report Type: 
  Country: None (occurrence: None)
  Receive Date: 20120323
  Receipt Date: 20110406
  Transmission Date: 20120608
  Serious: Yes (Other)
  Sender: FDA-Public Use
  Company Number: 163-21880-11040814

PATIENT
  Age: 58 Year
  Sex: Male
  Weight: 122.4712 kg

DRUGS (5)
  1. REVLIMID [Suspect]
     Indication: MULTIPLE MYELOMA
     Dosage: 15 MG, 1 IN 1 D, PO
     Route: 048
     Dates: start: 20091001
  2. VITAMIN D [Concomitant]
  3. VITAMIN B COMPLEX (B-KOMPLEX ^LECIVA^) [Concomitant]
  4. AMBIEN [Concomitant]
  5. CALCIUM CARBONATE [Concomitant]

REACTIONS (3)
  - BLOOD PRESSURE INCREASED [None]
  - PAIN IN EXTREMITY [None]
  - INFECTION [None]
